FAERS Safety Report 7312662-X (Version None)
Quarter: 2011Q1

REPORT INFORMATION
  Report Type: 
  Country: None (occurrence: None)
  Receive Date: 20110224
  Receipt Date: 20101209
  Transmission Date: 20110831
  Serious: No
  Sender: FDA-Public Use
  Company Number: US-ASTRAZENECA-2010SE48698

PATIENT
  Age: 70 Year
  Sex: Female

DRUGS (2)
  1. VIMOVO [Suspect]
     Indication: PAIN
     Dosage: 500 MG TWO TIMES A DAY
     Route: 048
     Dates: start: 20101006, end: 20101008
  2. VIMOVO [Suspect]
     Indication: ARTHRITIS
     Dosage: 500 MG TWO TIMES A DAY
     Route: 048
     Dates: start: 20101006, end: 20101008

REACTIONS (3)
  - FEELING DRUNK [None]
  - DIZZINESS [None]
  - DYSPNOEA [None]
